FAERS Safety Report 14226484 (Version 3)
Quarter: 2018Q1

REPORT INFORMATION
  Report Type: Spontaneous
  Country: JP (occurrence: JP)
  Receive Date: 20171127
  Receipt Date: 20180130
  Transmission Date: 20180508
  Serious: Yes (Death)
  Sender: FDA-Public Use
  Company Number: JP-BAYER-2017-223919

PATIENT
  Age: 74 Year
  Sex: Male
  Weight: 52 kg

DRUGS (13)
  1. ALDACTONE A [Concomitant]
     Active Substance: SPIRONOLACTONE
     Indication: ASCITES
     Dosage: DAILY DOSE 1 DF
     Route: 048
     Dates: start: 20170529, end: 20171029
  2. NEXAVAR [Concomitant]
     Active Substance: SORAFENIB
     Dosage: DAILY DOSE 600 MG
     Route: 048
     Dates: start: 20140421, end: 20171014
  3. HERBALIFE PRODUCTS [Concomitant]
     Active Substance: HERBALS
     Indication: HEPATIC FUNCTION ABNORMAL
     Dosage: DAILY DOSE 3 DF
     Route: 048
     Dates: start: 20120620, end: 20171029
  4. DIART [Concomitant]
     Active Substance: AZOSEMIDE
     Indication: ASCITES
     Dosage: DAILY DOSE 1 DF
     Route: 048
     Dates: start: 20170529, end: 20171029
  5. BIO-THREE [Concomitant]
     Active Substance: HERBALS
     Indication: DIARRHOEA
     Dosage: DAILY DOSE 3 DF
     Route: 048
     Dates: start: 20121022, end: 20171029
  6. GASCON [Concomitant]
     Active Substance: DIMETHICONE
     Indication: ABDOMINAL DISTENSION
     Dosage: DAILY DOSE 3 DF
     Route: 048
     Dates: start: 20150126, end: 20171029
  7. KANAMYCIN [Concomitant]
     Active Substance: KANAMYCIN\KANAMYCIN A SULFATE
  8. LACTULOSE. [Concomitant]
     Active Substance: LACTULOSE
  9. AMINOLEBAN [Concomitant]
     Active Substance: AMINO ACIDS
  10. URSO [Concomitant]
     Active Substance: URSODIOL
     Indication: HEPATIC FUNCTION ABNORMAL
     Dosage: DAILY DOSE 6 DF
     Route: 048
     Dates: start: 20120618, end: 20171021
  11. LOPENA [Concomitant]
     Indication: DIARRHOEA
     Dosage: DAILY DOSE 4 DF
     Route: 048
     Dates: start: 20140714, end: 20171029
  12. STIVARGA [Suspect]
     Active Substance: REGORAFENIB
     Indication: HEPATOCELLULAR CARCINOMA
     Dosage: 120MG, QD
     Route: 048
     Dates: start: 20171016, end: 20171029
  13. TAURINE [Concomitant]
     Active Substance: TAURINE
     Indication: HEPATIC FUNCTION ABNORMAL
     Dosage: DAILY DOSE 3 DF
     Route: 048
     Dates: start: 20120620, end: 20171029

REACTIONS (6)
  - Dehydration [None]
  - Restlessness [Fatal]
  - Mobility decreased [Fatal]
  - Decreased appetite [None]
  - Altered state of consciousness [Fatal]
  - Renal disorder [Fatal]

NARRATIVE: CASE EVENT DATE: 20171029
